FAERS Safety Report 6245963-7 (Version None)
Quarter: 2009Q2

REPORT INFORMATION
  Report Type: 
  Country: None (occurrence: None)
  Receive Date: 20090626
  Receipt Date: 20080902
  Transmission Date: 20091009
  Serious: Yes (Hospitalization)
  Sender: FDA-Public Use
  Company Number: A0745696A

PATIENT
  Age: 24 Year
  Sex: Male

DRUGS (8)
  1. IMITREX [Suspect]
     Indication: MIGRAINE
     Dosage: 100MG AS REQUIRED
     Route: 048
  2. IMITREX [Suspect]
     Route: 058
  3. IMIGRAN AUTOINJECTOR [Suspect]
  4. CYMBALTA [Concomitant]
  5. NEXIUM [Concomitant]
  6. TRAZODONE HCL [Concomitant]
  7. RESTORIL [Concomitant]
  8. CLORAZEPATE DIPOTASSIUM [Concomitant]

REACTIONS (4)
  - DIZZINESS [None]
  - DRUG INEFFECTIVE [None]
  - PRODUCT QUALITY ISSUE [None]
  - SENSORY DISTURBANCE [None]
